FAERS Safety Report 5639610-2 (Version None)
Quarter: 2008Q1

REPORT INFORMATION
  Report Type: 
  Country: None (occurrence: None)
  Receive Date: 20080220
  Receipt Date: 20080220
  Transmission Date: 20080703
  Serious: Yes (Hospitalization)
  Sender: FDA-Public Use
  Company Number: DSU-2007-00933

PATIENT
  Age: 67 Year
  Sex: Female
  Weight: 70.3075 kg

DRUGS (3)
  1. AZOR [Suspect]
     Indication: HYPERTENSION
     Dosage: 10/40 MG (5) 20 MG BID), PER ORAL
     Route: 048
     Dates: start: 20070101, end: 20071115
  2. PLAVIX (CLOPIDOGREL SULFATE) (75 MILLIGRAM) (CLOPIDOGREL SULFATE) [Concomitant]
  3. VYTORIN [Concomitant]

REACTIONS (4)
  - CEREBRAL ISCHAEMIA [None]
  - FALL [None]
  - HAEMOGLOBIN DECREASED [None]
  - HYPOTENSION [None]
